FAERS Safety Report 5483578-9 (Version None)
Quarter: 2007Q4

REPORT INFORMATION
  Report Type: 
  Country: None (occurrence: None)
  Receive Date: 20071009
  Receipt Date: 20070928
  Transmission Date: 20080405
  Serious: Yes (Hospitalization)
  Sender: FDA-Public Use
  Company Number: 2007US002263

PATIENT
  Age: 75 Year
  Sex: Female

DRUGS (7)
  1. VESICARE [Suspect]
     Indication: DRUG USE FOR UNKNOWN INDICATION
     Dosage: 5 MG, UID/QD, ORAL
     Route: 048
     Dates: start: 20070913, end: 20070913
  2. METFORMIN (METFORMIN HYDROCHLORIDE) [Concomitant]
  3. GLIMEPIRIDE [Concomitant]
  4. GABAPENTIN [Concomitant]
  5. MULTIVITAMINS (ERGOCALCIFEROL, FOLIC ACID, NICOTINAMIDE, PANTHENOL, TH [Concomitant]
  6. ATENOLOL [Concomitant]
  7. ALTACE [Concomitant]

REACTIONS (10)
  - AGITATION [None]
  - DYSPNOEA [None]
  - HYPERTENSION [None]
  - MUSCULOSKELETAL DISCOMFORT [None]
  - PALPITATIONS [None]
  - TOOTHACHE [None]
  - URINARY RETENTION [None]
  - VAGINAL ABSCESS [None]
  - VAGINAL HAEMORRHAGE [None]
  - VISION BLURRED [None]
